FAERS Safety Report 8216444 (Version 3)
Quarter: 2013Q1

REPORT INFORMATION
  Report Type: Spontaneous
  Country: US (occurrence: US)
  Receive Date: 20111031
  Receipt Date: 20130114
  Transmission Date: 20140127
  Serious: Yes (Other)
  Sender: FDA-Public Use
  Company Number: US-ROCHE-791130

PATIENT
  Age: 15 Year
  Sex: Male
  Weight: 68.1 kg

DRUGS (2)
  1. ACCUTANE [Suspect]
     Indication: PRODUCT USED FOR UNKNOWN INDICATION
     Route: 048
     Dates: start: 200206, end: 200208
  2. ACCUTANE [Suspect]
     Route: 048

REACTIONS (13)
  - Colitis ulcerative [Unknown]
  - Crohn^s disease [Unknown]
  - Inflammatory bowel disease [Unknown]
  - Emotional distress [Unknown]
  - Eye inflammation [Unknown]
  - Blepharitis [Unknown]
  - Blood triglycerides increased [Unknown]
  - High density lipoprotein decreased [Unknown]
  - Cheilitis [Unknown]
  - Xerosis [Unknown]
  - Low density lipoprotein increased [Unknown]
  - Epistaxis [Unknown]
  - Blood cholesterol increased [Unknown]
